FAERS Safety Report 22613054 (Version 1)
Quarter: 2023Q2

REPORT INFORMATION
  Report Type: Spontaneous
  Country: US (occurrence: US)
  Receive Date: 20230618
  Receipt Date: 20230618
  Transmission Date: 20230722
  Serious: No
  Sender: FDA-Public Use
  Company Number: US-LANTHEUS-LMI-2023-00340

PATIENT
  Age: 57 Year
  Sex: Male
  Weight: 99 kg

DRUGS (4)
  1. PYLARIFY [Suspect]
     Active Substance: PIFLUFOLASTAT F-18
     Indication: Scan
     Dosage: 10.69 MILLICURIE
     Route: 042
     Dates: start: 20230316, end: 20230316
  2. PYLARIFY [Suspect]
     Active Substance: PIFLUFOLASTAT F-18
     Indication: Prostate cancer
  3. BARIUM SULFATE [Concomitant]
     Active Substance: BARIUM SULFATE
     Indication: Product used for unknown indication
     Dosage: UNK
  4. IOHEXOL [Concomitant]
     Active Substance: IOHEXOL
     Indication: Product used for unknown indication
     Dosage: UNK

REACTIONS (2)
  - Radioisotope scan abnormal [Unknown]
  - Drug ineffective [Unknown]

NARRATIVE: CASE EVENT DATE: 20230316
